FAERS Safety Report 26094750 (Version 1)
Quarter: 2025Q4

REPORT INFORMATION
  Report Type: Spontaneous
  Country: US (occurrence: US)
  Receive Date: 20251126
  Receipt Date: 20251126
  Transmission Date: 20260118
  Serious: Yes (Hospitalization, Other)
  Sender: BRISTOL-MYERS SQUIBB COMPANY
  Company Number: US-BRISTOL-MYERS SQUIBB COMPANY-2025-159521

PATIENT
  Sex: Male

DRUGS (2)
  1. ELIQUIS [Suspect]
     Active Substance: APIXABAN
     Indication: Product used for unknown indication
  2. ENZALUTAMIDE [Suspect]
     Active Substance: ENZALUTAMIDE
     Indication: Hepatic cancer metastatic
     Route: 048
     Dates: start: 20230302

REACTIONS (7)
  - Atrial fibrillation [Unknown]
  - Pathological fracture [Unknown]
  - Barrett^s oesophagus [Unknown]
  - Pulmonary embolism [Unknown]
  - Malignant neoplasm progression [Unknown]
  - Haematochezia [Unknown]
  - Rectal haemorrhage [Unknown]
